FAERS Safety Report 7283994-9 (Version None)
Quarter: 2011Q1

REPORT INFORMATION
  Report Type: 
  Country: None (occurrence: None)
  Receive Date: 20110209
  Receipt Date: 20110131
  Transmission Date: 20110831
  Serious: Yes (Hospitalization)
  Sender: FDA-Public Use
  Company Number: ES-ASTRAZENECA-2011SE06089

PATIENT
  Age: 79 Year
  Sex: Male

DRUGS (8)
  1. COLCHICINE [Interacting]
     Indication: HYPERURICAEMIA
     Dates: start: 20000103, end: 20101005
  2. ALLOPURINOL [Interacting]
     Indication: HYPERURICAEMIA
     Route: 048
     Dates: start: 20091102, end: 20101013
  3. MANIDON [Interacting]
     Indication: HYPERTENSION
     Route: 048
     Dates: start: 20000103, end: 20101013
  4. EUCREAS [Concomitant]
     Indication: TYPE 2 DIABETES MELLITUS
     Dosage: 50 MG/ 850 MG
     Dates: start: 20100924, end: 20101005
  5. CRESTOR [Suspect]
     Indication: DYSLIPIDAEMIA
     Route: 048
     Dates: start: 20060102, end: 20101013
  6. ACALKA [Concomitant]
     Route: 048
     Dates: start: 20091102, end: 20101013
  7. CLARITHROMYCIN [Interacting]
     Indication: ORGANISING PNEUMONIA
     Dates: start: 20100924, end: 20101005
  8. CEFTRIAXONE [Concomitant]
     Indication: ORGANISING PNEUMONIA
     Route: 065
     Dates: start: 20090105, end: 20101013

REACTIONS (4)
  - DRUG INTERACTION [None]
  - LEFT VENTRICULAR DYSFUNCTION [None]
  - RHABDOMYOLYSIS [None]
  - RENAL FAILURE ACUTE [None]
